FAERS Safety Report 4597013-6 (Version None)
Quarter: 2005Q1

REPORT INFORMATION
  Report Type: 
  Country: None (occurrence: None)
  Receive Date: 20050301
  Receipt Date: 20050126
  Transmission Date: 20050727
  Serious: Yes (Death)
  Sender: FDA-Public Use
  Company Number: 2005S1000305

PATIENT
  Age: 41 Year
  Sex: Male

DRUGS (5)
  1. CLOZAPINE [Suspect]
     Dosage: 50MG, HS, ORAL
     Route: 048
     Dates: start: 20040312, end: 20041221
  2. CLOZAPINE [Suspect]
     Dosage: 100MG QAM AND 200MG HS, ORAL
     Route: 048
     Dates: start: 20040312, end: 20041221
  3. RISPERIDONE [Concomitant]
  4. BENZTROPINE MESYLATE [Concomitant]
  5. METHSCOPOLAMINE [Concomitant]

REACTIONS (2)
  - CIRCULATORY COLLAPSE [None]
  - PNEUMONIA [None]
